FAERS Safety Report 11574274 (Version 1)
Quarter: 2015Q3

REPORT INFORMATION
  Report Type: Spontaneous
  Country: US (occurrence: None)
  Receive Date: 20150928
  Receipt Date: 20150928
  Transmission Date: 20151125
  Serious: Yes (Hospitalization)
  Sender: FDA-Public Use
  Company Number: None

PATIENT
  Age: 66 Year
  Sex: Male
  Weight: 99.1 kg

DRUGS (1)
  1. WARFARIN [Suspect]
     Active Substance: WARFARIN
     Indication: ATRIAL FIBRILLATION
     Dosage: MG
     Route: 048
     Dates: start: 20120814, end: 20150903

REACTIONS (5)
  - Hypoacusis [None]
  - Cerebrovascular accident [None]
  - Dementia Alzheimer^s type [None]
  - Transient ischaemic attack [None]
  - International normalised ratio decreased [None]

NARRATIVE: CASE EVENT DATE: 20150903
